FAERS Safety Report 9649486 (Version 1)
Quarter: 2013Q4

REPORT INFORMATION
  Report Type: Spontaneous
  Country: GB (occurrence: None)
  Receive Date: 20131010
  Receipt Date: 20131010
  Transmission Date: 20140711
  Serious: Yes (Other)
  Sender: FDA-Public Use
  Company Number: E2B_00000999

PATIENT
  Age: 70 Year
  Sex: Female

DRUGS (9)
  1. LEVETIRACETAM [Suspect]
     Indication: CONVULSION
     Dates: start: 20130504, end: 20130604
  2. ENOXAPARIN [Concomitant]
  3. CLOTRIMAZOLE [Concomitant]
  4. NYSTATIN [Concomitant]
  5. DEXAMETHASONE [Concomitant]
  6. PHENYTOIN [Concomitant]
  7. MEROPENEM [Concomitant]
  8. GENTAMICIN [Concomitant]
  9. TAZOCIN [Concomitant]

REACTIONS (1)
  - Neutropenia [None]
